FAERS Safety Report 9052889 (Version 1)
Quarter: 2013Q1

REPORT INFORMATION
  Report Type: Spontaneous
  Country: CA (occurrence: CA)
  Receive Date: 20130207
  Receipt Date: 20130207
  Transmission Date: 20140127
  Serious: Yes (Other)
  Sender: FDA-Public Use
  Company Number: CA-B.I. PHARMACEUTICALS,INC./RIDGEFIELD-2013-CN-00177CN

PATIENT
  Age: 78 Year
  Sex: Female
  Weight: 77.56 kg

DRUGS (6)
  1. PRADAX [Suspect]
     Dosage: 220 MG
     Route: 048
  2. COZAAR [Concomitant]
  3. MACROBID [Concomitant]
  4. METOPROLOL [Concomitant]
  5. PLAQUENIL [Concomitant]
  6. PREDNISONE [Concomitant]

REACTIONS (4)
  - Bleeding time prolonged [Recovered/Resolved]
  - Gastrointestinal haemorrhage [Recovered/Resolved]
  - Haemorrhoidal haemorrhage [Recovered/Resolved]
  - Laceration [Recovered/Resolved]
